FAERS Safety Report 4451587-4 (Version None)
Quarter: 2004Q3

REPORT INFORMATION
  Report Type: 
  Country: None (occurrence: None)
  Receive Date: 20040915
  Receipt Date: 20040903
  Transmission Date: 20050211
  Serious: Yes (Hospitalization, Other)
  Sender: FDA-Public Use
  Company Number: KII-2002-0004868

PATIENT
  Age: 45 Year
  Sex: Male

DRUGS (2)
  1. OXYCONTIN [Suspect]
     Indication: PAIN
     Dosage: 240 MG, Q8H,
  2. PERCOCET [Suspect]
     Indication: PAIN

REACTIONS (3)
  - DRUG ABUSER [None]
  - DRUG WITHDRAWAL SYNDROME [None]
  - PNEUMONIA [None]
